FAERS Safety Report 5060012-4 (Version None)
Quarter: 2006Q2

REPORT INFORMATION
  Report Type: 
  Country: None (occurrence: None)
  Receive Date: 20060630
  Receipt Date: 20060124
  Transmission Date: 20061013
  Serious: Yes (Hospitalization)
  Sender: FDA-Public Use
  Company Number: US200601004167

PATIENT
  Age: 71 Year
  Sex: Female

DRUGS (26)
  1. HUMALOG [Suspect]
     Indication: DIABETES MELLITUS
     Dates: start: 20030101, end: 20051201
  2. HUMALOG MIX 75/25 [Suspect]
     Dosage: 20 U, 2/D
     Dates: start: 20051201
  3. DOXYCYCLINE [Concomitant]
  4. AVELOX [Concomitant]
  5. WELLBUTRIN [Concomitant]
  6. XANAX /USA/ (ALPRAZOLAM) [Concomitant]
  7. BUSPAR /AUS/ (BUSPIRONE HYDROCHLORIDE) [Concomitant]
  8. PROTONIX [Concomitant]
  9. LIPITOR [Concomitant]
  10. ZETIA [Concomitant]
  11. SPIRIVA [Concomitant]
  12. ASPIRIN [Concomitant]
  13. MS CONTIN [Concomitant]
  14. LEVOXYL [Concomitant]
  15. ADVAIR DISKUS 100/50 [Concomitant]
  16. DIOVAN [Concomitant]
  17. HYDROCHLOROTHIAZIDE [Concomitant]
  18. QUININE SULFATE (QUININE SULFATE UNKNOWN FORMULATION) [Concomitant]
  19. NEXIUM [Concomitant]
  20. PROCHLORPERAZINE MALEATE [Concomitant]
  21. ISOSORBIDE DINITRATE [Concomitant]
  22. KADIAN [Concomitant]
  23. MIACALCIN [Concomitant]
  24. VICODIN [Concomitant]
  25. LEXAPRO /USA/ (ESCITALOPRAM) [Concomitant]
  26. COMBIVENT /GFR/(IPRATROPIUM BROMIDE, SALBUTAMOL SULFATE) [Concomitant]

REACTIONS (1)
  - HYPOGLYCAEMIC SEIZURE [None]
